FAERS Safety Report 5302386-2 (Version None)
Quarter: 2007Q2

REPORT INFORMATION
  Report Type: 
  Country: None (occurrence: None)
  Receive Date: 20070413
  Receipt Date: 20070330
  Transmission Date: 20071010
  Serious: Yes (Other)
  Sender: FDA-Public Use
  Company Number: 2007RR-06631

PATIENT
  Sex: Female

DRUGS (2)
  1. CIPROFLOXACIN [Suspect]
     Dosage: 500 MG, BID
  2. IBUPROFEN [Concomitant]

REACTIONS (3)
  - HEADACHE [None]
  - MALAISE [None]
  - THINKING ABNORMAL [None]
